FAERS Safety Report 13770545 (Version 2)
Quarter: 2017Q4

REPORT INFORMATION
  Report Type: Report from Study
  Country: None (occurrence: US)
  Receive Date: 20170719
  Receipt Date: 20171006
  Transmission Date: 20180320
  Serious: Yes (Hospitalization)
  Sender: FDA-Public Use
  Company Number: US-ABBVIE-17P-163-2042670-00

PATIENT
  Age: 58 Year
  Sex: Male

DRUGS (2)
  1. DUOPA [Suspect]
     Active Substance: CARBIDOPA\LEVODOPA
     Indication: PARKINSON^S DISEASE
     Dosage: 2 ML TO 2.4 ML PER HOUR (CONTINUOUS)
     Route: 050
     Dates: start: 20160526, end: 201707
  2. DUOPA [Suspect]
     Active Substance: CARBIDOPA\LEVODOPA
     Route: 050
     Dates: start: 2017

REACTIONS (1)
  - Deep brain stimulation [Recovered/Resolved]

NARRATIVE: CASE EVENT DATE: 201707
